FAERS Safety Report 8033695-4 (Version None)
Quarter: 2012Q1

REPORT INFORMATION
  Report Type: 
  Country: None (occurrence: None)
  Receive Date: 20120110
  Receipt Date: 20110308
  Transmission Date: 20120608
  Serious: Yes (Hospitalization)
  Sender: FDA-Public Use
  Company Number: US-GLAXOSMITHKLINE-A0918126A

PATIENT
  Age: 53 Year
  Sex: Female
  Weight: 148.2 kg

DRUGS (1)
  1. AVANDAMET [Suspect]
     Indication: DIABETES MELLITUS
     Dosage: 1TAB TWICE PER DAY
     Route: 048

REACTIONS (2)
  - PULMONARY OEDEMA [None]
  - CORONARY ARTERY STENOSIS [None]
